FAERS Safety Report 14264844 (Version 4)
Quarter: 2018Q2

REPORT INFORMATION
  Report Type: Spontaneous
  Country: US (occurrence: US)
  Receive Date: 20171208
  Receipt Date: 20180406
  Transmission Date: 20180711
  Serious: Yes (Other)
  Sender: FDA-Public Use
  Company Number: US-PFIZER INC-2017520858

PATIENT
  Age: 71 Year

DRUGS (1)
  1. PALBOCICLIB [Suspect]
     Active Substance: PALBOCICLIB
     Indication: BREAST CANCER METASTATIC
     Dosage: UNK, CYCLIC (1 CYCLE = 28 DAYS)

REACTIONS (3)
  - Anaemia macrocytic [Unknown]
  - Neutrophil count decreased [Unknown]
  - Bone marrow failure [Recovering/Resolving]
